FAERS Safety Report 24767718 (Version 1)
Quarter: 2024Q4

REPORT INFORMATION
  Report Type: Spontaneous
  Country: EG (occurrence: None)
  Receive Date: 20241222
  Receipt Date: 20241222
  Transmission Date: 20250115
  Serious: Yes (Disabling, Other)
  Sender: Public
  Company Number: None

PATIENT
  Age: 27 Year
  Sex: Male
  Weight: 80 kg

DRUGS (3)
  1. ZOLOFT [Suspect]
     Active Substance: SERTRALINE HYDROCHLORIDE
  2. FISH OIL [Concomitant]
     Active Substance: FISH OIL
  3. VITAMIN D [Concomitant]
     Active Substance: VITAMIN D NOS

REACTIONS (7)
  - Sexual dysfunction [None]
  - Erectile dysfunction [None]
  - Premature ejaculation [None]
  - Fatigue [None]
  - Meibomian gland dysfunction [None]
  - Emotional disorder [None]
  - Drug ineffective [None]

NARRATIVE: CASE EVENT DATE: 20201217
